FAERS Safety Report 24415334 (Version 1)
Quarter: 2024Q4

REPORT INFORMATION
  Report Type: Spontaneous
  Country: US (occurrence: US)
  Receive Date: 20241009
  Receipt Date: 20241009
  Transmission Date: 20250115
  Serious: Yes (Other)
  Sender: NOVARTIS
  Company Number: US-002147023-NVSC2024US196914

PATIENT
  Sex: Male

DRUGS (1)
  1. LUTATHERA [Suspect]
     Active Substance: LUTETIUM OXODOTREOTIDE LU-177
     Indication: Ascites
     Dosage: 740 MBQ (STANDARD DOSE IS 200MCI) (STANDARD DOSE IS UP TO 4 DOSES 8 WEEKS APART. UNSURE WHAT WAS GIV
     Route: 042
     Dates: start: 2024, end: 2024

REACTIONS (2)
  - Ascites [Not Recovered/Not Resolved]
  - Off label use [Unknown]
